FAERS Safety Report 9922168 (Version 1)
Quarter: 2014Q1

REPORT INFORMATION
  Report Type: Spontaneous
  Country: FR (occurrence: FR)
  Receive Date: 20140225
  Receipt Date: 20140225
  Transmission Date: 20141002
  Serious: Yes (Hospitalization)
  Sender: FDA-Public Use
  Company Number: FR-PFIZER INC-2014048694

PATIENT
  Age: 70 Year
  Sex: Male

DRUGS (6)
  1. ALDACTONE [Suspect]
     Dosage: 25 MG, 1X/DAY
     Route: 048
     Dates: end: 20140102
  2. METFORMIN HCL [Suspect]
     Indication: DIABETES MELLITUS
     Dosage: 3000 MG, DAILY
     Route: 048
     Dates: end: 20140102
  3. EUCREAS [Suspect]
     Dosage: 2 DF, 1X/DAY
     Route: 048
     Dates: end: 20140102
  4. XELODA [Suspect]
     Dosage: 4 DF, 1X/DAY
     Route: 048
     Dates: start: 20131215
  5. ZOLPIDEM [Suspect]
     Dosage: UNK
     Dates: end: 20140102
  6. IXPRIM [Suspect]

REACTIONS (6)
  - Respiratory distress [Recovered/Resolved]
  - Renal failure acute [Recovered/Resolved]
  - Lactic acidosis [Recovered/Resolved]
  - Encephalopathy [Recovered/Resolved]
  - Vomiting [Recovered/Resolved]
  - Decreased appetite [Unknown]
